FAERS Safety Report 19077652 (Version 1)
Quarter: 2021Q1

REPORT INFORMATION
  Report Type: Spontaneous
  Country: US (occurrence: US)
  Receive Date: 20210330
  Receipt Date: 20210330
  Transmission Date: 20210420
  Serious: Yes (Hospitalization, Other)
  Sender: FDA-Public Use
  Company Number: None

PATIENT

DRUGS (7)
  1. TRAMADOL. [Concomitant]
     Active Substance: TRAMADOL
  2. MIDAZOLAM. [Concomitant]
     Active Substance: MIDAZOLAM
  3. FENTANYL. [Suspect]
     Active Substance: FENTANYL
  4. PROPOFOL. [Concomitant]
     Active Substance: PROPOFOL
  5. GABAPENTIN. [Concomitant]
     Active Substance: GABAPENTIN
  6. SERTRALINE [Concomitant]
     Active Substance: SERTRALINE HYDROCHLORIDE
  7. MORPHINE [Suspect]
     Active Substance: MORPHINE

REACTIONS (2)
  - Fall [None]
  - Balance disorder [None]

NARRATIVE: CASE EVENT DATE: 20190830
